FAERS Safety Report 11957799 (Version 1)
Quarter: 2016Q1

REPORT INFORMATION
  Report Type: Report from Study
  Country: US (occurrence: US)
  Receive Date: 20160126
  Receipt Date: 20160126
  Transmission Date: 20160526
  Serious: Yes (Hospitalization)
  Sender: FDA-Public Use
  Company Number: US-ACTELION-A-US2015-129444

PATIENT
  Age: 59 Year
  Sex: Male

DRUGS (3)
  1. VELETRI [Suspect]
     Active Substance: EPOPROSTENOL
     Indication: PULMONARY HYPERTENSION
     Dosage: 10 NG/KG, PER MIN
     Route: 042
     Dates: start: 20151230
  2. LETAIRIS [Concomitant]
     Active Substance: AMBRISENTAN
  3. SILDENAFIL. [Concomitant]
     Active Substance: SILDENAFIL

REACTIONS (10)
  - Gastrointestinal haemorrhage [Unknown]
  - Dyspnoea [Unknown]
  - Pulmonary oedema [Unknown]
  - Pulmonary arterial hypertension [Unknown]
  - Device use error [Unknown]
  - Malaise [Unknown]
  - Headache [Unknown]
  - Drug dose omission [Unknown]
  - Device alarm issue [Unknown]
  - Nasal congestion [Unknown]
